FAERS Safety Report 5250046-9 (Version None)
Quarter: 2007Q1

REPORT INFORMATION
  Report Type: 
  Country: None (occurrence: None)
  Receive Date: 20070228
  Receipt Date: 20060215
  Transmission Date: 20070707
  Serious: No
  Sender: FDA-Public Use
  Company Number: US-GLAXOSMITHKLINE-A0591522A

PATIENT
  Age: 42 Year
  Sex: Male
  Weight: 100 kg

DRUGS (3)
  1. LAMICTAL [Suspect]
     Indication: EPILEPSY
     Dosage: 450MG UNKNOWN
     Route: 048
     Dates: start: 20020101
  2. DEPAKOTE [Concomitant]
  3. ZONEGRAN [Concomitant]

REACTIONS (3)
  - DIZZINESS [None]
  - DRUG LEVEL INCREASED [None]
  - GAIT DISTURBANCE [None]
